FAERS Safety Report 7233013-5 (Version None)
Quarter: 2011Q1

REPORT INFORMATION
  Report Type: 
  Country: None (occurrence: None)
  Receive Date: 20110119
  Receipt Date: 20110117
  Transmission Date: 20110831
  Serious: Yes (Other)
  Sender: FDA-Public Use
  Company Number: SG-PFIZER INC-2011010949

PATIENT
  Sex: Female

DRUGS (3)
  1. FLUOXETINE [Suspect]
     Indication: OBSESSIVE-COMPULSIVE DISORDER
     Dosage: 20 MG, 1X/DAY, IN MORNING
  2. ALPRAZOLAM [Suspect]
     Dosage: 0.125 MG, 1X/DAY
  3. ALPRAZOLAM [Suspect]
     Indication: OBSESSIVE-COMPULSIVE DISORDER
     Dosage: 0.25 MG, THREE TIMES A DAY, AS NEEDED
     Route: 048

REACTIONS (2)
  - SOMNOLENCE [None]
  - SUICIDAL IDEATION [None]
